FAERS Safety Report 5328052-5 (Version None)
Quarter: 2007Q2

REPORT INFORMATION
  Report Type: 
  Country: None (occurrence: None)
  Receive Date: 20070514
  Receipt Date: 20070501
  Transmission Date: 20071010
  Serious: Yes (Other)
  Sender: FDA-Public Use
  Company Number: 2007BI007549

PATIENT
  Age: 55 Year
  Sex: Female

DRUGS (10)
  1. AVONEX [Suspect]
     Indication: MULTIPLE SCLEROSIS
     Dosage: 30 UG;QW;IM
     Route: 030
     Dates: start: 20000801, end: 20030801
  2. AVONEX [Suspect]
     Indication: MULTIPLE SCLEROSIS
     Dosage: 30 UG;QW;IM
     Route: 030
     Dates: start: 20030901, end: 20070301
  3. FOSAMAX [Concomitant]
  4. ASPIRIN [Concomitant]
  5. CLONAZEPAM [Concomitant]
  6. LORAZEPAM [Concomitant]
  7. DOXYCYCLINE [Concomitant]
  8. METHYCELLULOSE [Concomitant]
  9. SENNA [Concomitant]
  10. B COMPLEX VITAMINS [Concomitant]

REACTIONS (1)
  - NON-SMALL CELL LUNG CANCER STAGE IV [None]
